FAERS Safety Report 6983972-0 (Version None)
Quarter: 2010Q3

REPORT INFORMATION
  Report Type: 
  Country: None (occurrence: None)
  Receive Date: 20100915
  Receipt Date: 20090417
  Transmission Date: 20110219
  Serious: No
  Sender: FDA-Public Use
  Company Number: US-WYE-H09029409

PATIENT
  Age: 83 Year
  Sex: Female

DRUGS (3)
  1. TYGACIL [Suspect]
     Indication: INFECTION
     Dosage: UNKNOWN DOSE
     Route: 042
     Dates: start: 20090416, end: 20090416
  2. CLINDAMYCIN [Concomitant]
  3. AZTREONAM [Concomitant]

REACTIONS (2)
  - HYPOAESTHESIA [None]
  - PARAESTHESIA [None]
